FAERS Safety Report 4613857-6 (Version None)
Quarter: 2005Q1

REPORT INFORMATION
  Report Type: 
  Country: None (occurrence: None)
  Receive Date: 20050316
  Receipt Date: 20050301
  Transmission Date: 20050727
  Serious: Yes (Life-Threatening)
  Sender: FDA-Public Use
  Company Number: 2004-BP-14428NB

PATIENT
  Age: 66 Year
  Sex: Male

DRUGS (2)
  1. MOBIC [Suspect]
     Indication: RHEUMATOID ARTHRITIS
     Dosage: 10 MG (10 MG) PO
     Route: 048
     Dates: start: 20041214, end: 20041228
  2. CLINDAMYCIN (CLINDAMYCIN) [Concomitant]

REACTIONS (1)
  - AGRANULOCYTOSIS [None]
